FAERS Safety Report 10696153 (Version 2)
Quarter: 2015Q1

REPORT INFORMATION
  Report Type: Spontaneous
  Country: US (occurrence: US)
  Receive Date: 20150107
  Receipt Date: 20150210
  Transmission Date: 20150721
  Serious: Yes (Hospitalization, Other)
  Sender: FDA-Public Use
  Company Number: US-BAYER-2015-001666

PATIENT
  Age: 23 Year
  Sex: Female
  Weight: 79.37 kg

DRUGS (2)
  1. MIRENA [Suspect]
     Active Substance: LEVONORGESTREL
     Indication: MENORRHAGIA
  2. MIRENA [Suspect]
     Active Substance: LEVONORGESTREL
     Indication: CONTRACEPTION
     Dosage: 20 MCG/24HR, CONT
     Route: 015
     Dates: start: 20070302, end: 20071219

REACTIONS (4)
  - Pain [None]
  - Injury [None]
  - Uterine perforation [None]
  - Pelvic organ injury [None]

NARRATIVE: CASE EVENT DATE: 20071219
